FAERS Safety Report 18034381 (Version 1)
Quarter: 2020Q3

REPORT INFORMATION
  Report Type: Spontaneous
  Country: US (occurrence: US)
  Receive Date: 20200716
  Receipt Date: 20200716
  Transmission Date: 20201103
  Serious: Yes (Hospitalization)
  Sender: FDA-Public Use
  Company Number: NVSC2020US197848

PATIENT
  Age: 16 Year
  Sex: Female

DRUGS (1)
  1. ACETAMINOPHEN (PARACETAMOL) [Suspect]
     Active Substance: ACETAMINOPHEN
     Indication: PRODUCT USED FOR UNKNOWN INDICATION
     Dosage: UNK (51 G, 906 MG/KG)
     Route: 065

REACTIONS (4)
  - Toxicity to various agents [Unknown]
  - Pancreatitis acute [Recovered/Resolved]
  - Intentional overdose [Unknown]
  - Transaminases increased [Recovering/Resolving]
